FAERS Safety Report 8981473 (Version 1)
Quarter: 2012Q4

REPORT INFORMATION
  Report Type: 
  Country: US (occurrence: US)
  Receive Date: 20121221
  Receipt Date: 20121221
  Transmission Date: 20130627
  Serious: Yes (Hospitalization, Other)
  Sender: FDA-Public Use
  Company Number: US-BAYER-2012-129357

PATIENT
  Age: 18 Year
  Sex: Female
  Weight: 77.1 kg

DRUGS (3)
  1. YAZ [Suspect]
  2. B12 [Concomitant]
  3. TRIPHASIL [Concomitant]

REACTIONS (3)
  - Cholecystitis chronic [None]
  - Deep vein thrombosis [None]
  - Deep vein thrombosis [None]
